FAERS Safety Report 6703923-3 (Version None)
Quarter: 2010Q2

REPORT INFORMATION
  Report Type: 
  Country: None (occurrence: None)
  Receive Date: 20100423
  Receipt Date: 20070927
  Transmission Date: 20101027
  Serious: Yes (Other)
  Sender: FDA-Public Use
  Company Number: SPV1-2007-04355

PATIENT
  Sex: Male

DRUGS (1)
  1. VYVANSE [Suspect]
     Dosage: 30 MG
     Dates: start: 20070101, end: 20070101

REACTIONS (2)
  - LOSS OF CONSCIOUSNESS [None]
  - URINARY INCONTINENCE [None]
